FAERS Safety Report 8362509-8 (Version None)
Quarter: 2012Q2

REPORT INFORMATION
  Report Type: 
  Country: None (occurrence: None)
  Receive Date: 20120516
  Receipt Date: 20120509
  Transmission Date: 20120825
  Serious: Yes (Hospitalization)
  Sender: FDA-Public Use
  Company Number: US-CELGENEUS-163-21880-12051359

PATIENT
  Sex: Female

DRUGS (4)
  1. LASIX [Concomitant]
     Route: 065
  2. METOLAZONE [Concomitant]
     Route: 065
  3. REVLIMID [Suspect]
     Indication: MYELODYSPLASTIC SYNDROME
     Dosage: 5 MILLIGRAM
     Route: 048
     Dates: start: 20120405, end: 20120101
  4. CARVEDILOL [Concomitant]
     Route: 065

REACTIONS (3)
  - GOUT [None]
  - ORTHOSTATIC HYPOTENSION [None]
  - ELECTROLYTE IMBALANCE [None]
